FAERS Safety Report 5716387-3 (Version None)
Quarter: 2008Q2

REPORT INFORMATION
  Report Type: 
  Country: None (occurrence: None)
  Receive Date: 20080424
  Receipt Date: 20080414
  Transmission Date: 20081010
  Serious: Yes (Hospitalization, Disabling)
  Sender: FDA-Public Use
  Company Number: PHHO2008ES04887

PATIENT
  Age: 47 Year
  Sex: Male

DRUGS (4)
  1. CYCLOSPORINE [Suspect]
     Indication: LIVER TRANSPLANT
  2. LAMIVUDINE [Concomitant]
     Route: 048
     Dates: start: 20060523
  3. RITONAVIR [Concomitant]
  4. ENFUVIRTIDE [Concomitant]
     Route: 058
     Dates: start: 20060523

REACTIONS (8)
  - ATAXIA [None]
  - CEREBELLAR SYNDROME [None]
  - GAIT DISTURBANCE [None]
  - HEMIPARESIS [None]
  - HYPOAESTHESIA [None]
  - PALLANAESTHESIA [None]
  - PARAESTHESIA [None]
  - TRANSIENT ISCHAEMIC ATTACK [None]
